FAERS Safety Report 16022083 (Version 1)
Quarter: 2019Q2

REPORT INFORMATION
  Report Type: Spontaneous
  Country: US (occurrence: US)
  Receive Date: 20190301
  Receipt Date: 20190301
  Transmission Date: 20190711
  Serious: Yes (Death)
  Sender: FDA-Public Use
  Company Number: None

PATIENT
  Age: 65 Year
  Sex: Female

DRUGS (9)
  1. ARIPIPRAZOLE TAB 2MG [Concomitant]
  2. BUMETANIDE TAB 2MG [Concomitant]
  3. BUPROPION TAB 150MG SR [Concomitant]
  4. FLUOXETINE CAP 20MG [Concomitant]
  5. FUROSEMIDE TAB 20MG [Concomitant]
  6. SILDENAFIL. [Suspect]
     Active Substance: SILDENAFIL
     Indication: PULMONARY ARTERIAL HYPERTENSION
     Dosage: ?          OTHER FREQUENCY:EVERY 8 HOURS;?
     Route: 048
     Dates: start: 20160429, end: 20190216
  7. FAMOTIDINE TAB 20MG [Concomitant]
  8. ASPIRIN LOW TAB 81MG EC [Concomitant]
  9. SPIRONOLACT TAB 25MG [Concomitant]

REACTIONS (1)
  - Death [None]

NARRATIVE: CASE EVENT DATE: 20190216
